FAERS Safety Report 21459879 (Version 5)
Quarter: 2023Q2

REPORT INFORMATION
  Report Type: Spontaneous
  Country: US (occurrence: US)
  Receive Date: 20221014
  Receipt Date: 20230405
  Transmission Date: 20230722
  Serious: No
  Sender: FDA-Public Use
  Company Number: US-KARYOPHARM-2022KPT001192

PATIENT

DRUGS (25)
  1. XPOVIO [Suspect]
     Active Substance: SELINEXOR
     Indication: Plasma cell myeloma
     Dosage: 100 MG, WEEKLY
     Route: 048
     Dates: start: 20220920
  2. XPOVIO [Suspect]
     Active Substance: SELINEXOR
     Dosage: 100 MG, WEEKLY
     Route: 048
     Dates: end: 20230207
  3. ZOFRAN [Concomitant]
     Active Substance: ONDANSETRON HYDROCHLORIDE
  4. XGEVA [Concomitant]
     Active Substance: DENOSUMAB
  5. VRAYLAR [Concomitant]
     Active Substance: CARIPRAZINE
  6. SYNJARDY [Concomitant]
     Active Substance: EMPAGLIFLOZIN\METFORMIN HYDROCHLORIDE
  7. SPIRONOLACTONE [Concomitant]
     Active Substance: SPIRONOLACTONE
  8. RAMIPRIL [Concomitant]
     Active Substance: RAMIPRIL
  9. PAXIL [Concomitant]
     Active Substance: PAROXETINE HYDROCHLORIDE
  10. PANTOPRAZOLE [Concomitant]
     Active Substance: PANTOPRAZOLE
  11. OZEMPIC [Concomitant]
     Active Substance: SEMAGLUTIDE
  12. METOPROLOL [Concomitant]
     Active Substance: METOPROLOL
  13. LANTUS [Concomitant]
     Active Substance: INSULIN GLARGINE
  14. ISOSORBIDE [Concomitant]
     Active Substance: ISOSORBIDE
  15. FUROSEMIDE [Concomitant]
     Active Substance: FUROSEMIDE
  16. FENOFIBRIC ACID [Concomitant]
     Active Substance: FENOFIBRIC ACID
  17. DEXAMETHASONE [Concomitant]
     Active Substance: DEXAMETHASONE
  18. POTASSIUM [Concomitant]
     Active Substance: POTASSIUM
  19. ACYCLOVIR [Concomitant]
     Active Substance: ACYCLOVIR
  20. ADVAIR HFA [Concomitant]
     Active Substance: FLUTICASONE PROPIONATE\SALMETEROL XINAFOATE
  21. AMBIEN [Concomitant]
     Active Substance: ZOLPIDEM TARTRATE
  22. BRILINTA [Concomitant]
     Active Substance: TICAGRELOR
  23. AMLODIPINE [Concomitant]
     Active Substance: AMLODIPINE BESYLATE
  24. CRESTOR [Concomitant]
     Active Substance: ROSUVASTATIN CALCIUM
  25. VELCADE [Concomitant]
     Active Substance: BORTEZOMIB

REACTIONS (5)
  - Insomnia [Unknown]
  - Ear infection [Unknown]
  - Dizziness [Recovering/Resolving]
  - Fatigue [Unknown]
  - Diarrhoea [Recovering/Resolving]

NARRATIVE: CASE EVENT DATE: 20220101
